FAERS Safety Report 5725831-7 (Version None)
Quarter: 2008Q2

REPORT INFORMATION
  Report Type: 
  Country: None (occurrence: None)
  Receive Date: 20080429
  Receipt Date: 20080401
  Transmission Date: 20081010
  Serious: No
  Sender: FDA-Public Use
  Company Number: 002#2#2008-00198

PATIENT
  Age: 58 Year
  Sex: Female
  Weight: 65.7716 kg

DRUGS (7)
  1. NEUPRO [Suspect]
     Indication: PARKINSON'S DISEASE
     Dosage: 4MG/24H, 1 IN 1 D, TRANSDERMAL ; 6MG/24H, 1 IN 1 D, TRANSDERMAL
     Route: 062
     Dates: start: 20071101, end: 20071101
  2. NEUPRO [Suspect]
     Indication: PARKINSON'S DISEASE
     Dosage: 4MG/24H, 1 IN 1 D, TRANSDERMAL ; 6MG/24H, 1 IN 1 D, TRANSDERMAL
     Route: 062
     Dates: start: 20071110, end: 20071101
  3. NEUPRO [Suspect]
  4. STALEVO 100 [Concomitant]
  5. AZILEC [Concomitant]
  6. ARTANE [Concomitant]
  7. MIRAPEX [Concomitant]

REACTIONS (3)
  - CONDITION AGGRAVATED [None]
  - DRUG INEFFECTIVE [None]
  - TREMOR [None]
